FAERS Safety Report 21964752 (Version 1)
Quarter: 2023Q1

REPORT INFORMATION
  Report Type: Spontaneous
  Country: CH (occurrence: CH)
  Receive Date: 20230207
  Receipt Date: 20230207
  Transmission Date: 20230417
  Serious: Yes (Other)
  Sender: FDA-Public Use
  Company Number: CH-009507513-2302CHE001440

PATIENT
  Age: 78 Year
  Sex: Female

DRUGS (1)
  1. KEYTRUDA [Suspect]
     Active Substance: PEMBROLIZUMAB
     Indication: Lung squamous cell carcinoma metastatic
     Dosage: UNK
     Dates: start: 2017, end: 2020

REACTIONS (1)
  - Malignant neoplasm oligoprogression [Recovered/Resolved]

NARRATIVE: CASE EVENT DATE: 20180101
